FAERS Safety Report 6610939-4 (Version None)
Quarter: 2010Q1

REPORT INFORMATION
  Report Type: 
  Country: None (occurrence: None)
  Receive Date: 20100222
  Receipt Date: 20100216
  Transmission Date: 20100710
  Serious: Yes (Hospitalization)
  Sender: FDA-Public Use
  Company Number: 002299

PATIENT
  Sex: Female

DRUGS (21)
  1. ROTIGOTINE (ROTIGOTINE) [Suspect]
     Indication: PARKINSON'S DISEASE
     Dosage: SEE IMAGE
     Route: 062
     Dates: start: 20091228, end: 20091201
  2. ROTIGOTINE (ROTIGOTINE) [Suspect]
     Indication: PARKINSON'S DISEASE
     Dosage: SEE IMAGE
     Route: 062
     Dates: start: 20091130, end: 20091208
  3. ROTIGOTINE (ROTIGOTINE) [Suspect]
     Indication: PARKINSON'S DISEASE
     Dosage: SEE IMAGE
     Route: 062
     Dates: start: 20091208, end: 20091214
  4. ROTIGOTINE (ROTIGOTINE) [Suspect]
     Indication: PARKINSON'S DISEASE
     Dosage: SEE IMAGE
     Route: 062
     Dates: start: 20091214, end: 20091221
  5. ROTIGOTINE (ROTIGOTINE) [Suspect]
     Indication: PARKINSON'S DISEASE
     Dosage: SEE IMAGE
     Route: 062
     Dates: start: 20091221, end: 20091228
  6. ROTIGOTINE (ROTIGOTINE) [Suspect]
     Indication: PARKINSON'S DISEASE
     Dosage: SEE IMAGE
     Route: 062
     Dates: start: 20091230
  7. MAGNESIUM OXIDE [Concomitant]
  8. SENNA ALEXANDRINA EXTRACT [Concomitant]
  9. OLMESARTAN MEDOXOMIL [Concomitant]
  10. SOLIFENACIN SUCCINATE [Concomitant]
  11. NIFEDIPINE [Concomitant]
  12. LEVODOPA [Concomitant]
  13. SELEGILINE HYDROCHLORIDE [Concomitant]
  14. PRAMIPEXOLE DIHYDROCHLORIDE [Concomitant]
  15. GALENIC /HYALURONATE SODIUM/ ACETYLCHOLIN [Concomitant]
  16. LIDOCAINE [Concomitant]
  17. LIDOCAINE HYDROCHLORIDE [Concomitant]
  18. LANSOPRAZOLE [Concomitant]
  19. IRSOGLADINE MALEATE [Concomitant]
  20. MOSAPRIDE CITRATE [Concomitant]
  21. DOMPERIDONE [Concomitant]

REACTIONS (12)
  - AORTIC ARTERIOSCLEROSIS [None]
  - CARDIOMEGALY [None]
  - FALL [None]
  - GASTRIC POLYPS [None]
  - GASTRITIS [None]
  - HAEMATEMESIS [None]
  - HEPATIC CYST [None]
  - JOINT INJURY [None]
  - LOSS OF CONSCIOUSNESS [None]
  - NAUSEA [None]
  - REFLUX OESOPHAGITIS [None]
  - SPINAL COMPRESSION FRACTURE [None]
